FAERS Safety Report 5274914-7 (Version None)
Quarter: 2007Q1

REPORT INFORMATION
  Report Type: 
  Country: None (occurrence: None)
  Receive Date: 20061208
  Receipt Date: 20060510
  Transmission Date: 20070707
  Serious: Yes (Hospitalization)
  Sender: FDA-Public Use
  Company Number: 2006UW07346

PATIENT
  Age: 71 Year
  Sex: Male

DRUGS (5)
  1. CRESTOR [Suspect]
     Dosage: 10 MG QD PO
     Route: 048
     Dates: start: 20060208, end: 20060428
  2. FLOMAX [Concomitant]
  3. SONATA [Concomitant]
  4. ZOLOFT [Concomitant]
  5. ACTOS [Concomitant]

REACTIONS (1)
  - PANCREATITIS [None]
